FAERS Safety Report 13805997 (Version 1)
Quarter: 2017Q3

REPORT INFORMATION
  Report Type: Spontaneous
  Country: US (occurrence: US)
  Receive Date: 20170728
  Receipt Date: 20170728
  Transmission Date: 20171127
  Serious: No
  Sender: FDA-Public Use
  Company Number: US-GLAXOSMITHKLINE-US2017116424

PATIENT
  Age: 84 Year
  Sex: Male

DRUGS (3)
  1. IPRATROPIUM [Concomitant]
     Active Substance: IPRATROPIUM
  2. ANORO ELLIPTA [Suspect]
     Active Substance: UMECLIDINIUM BROMIDE\VILANTEROL TRIFENATATE
     Indication: DYSPNOEA
     Dosage: 1 PUFF(S), QD
     Route: 055
     Dates: start: 201706
  3. VENTOLIN HFA [Suspect]
     Active Substance: ALBUTEROL SULFATE
     Indication: DYSPNOEA
     Dosage: UNK UNK, Z
     Route: 055
     Dates: start: 201705

REACTIONS (5)
  - Drug ineffective [Unknown]
  - Dizziness [Recovered/Resolved]
  - Therapy cessation [Unknown]
  - Balance disorder [Recovered/Resolved]
  - Intentional dose omission [Unknown]

NARRATIVE: CASE EVENT DATE: 201705
